FAERS Safety Report 9074544 (Version 1)
Quarter: 2013Q1

REPORT INFORMATION
  Report Type: Report from Study
  Country: US (occurrence: US)
  Receive Date: 20130128
  Receipt Date: 20130128
  Transmission Date: 20140127
  Serious: No
  Sender: FDA-Public Use
  Company Number: US-ABBOTT-12P-163-0915322-00

PATIENT
  Age: 24 Year
  Sex: Female

DRUGS (6)
  1. HUMIRA 40 MG/0.8 ML PEN [Suspect]
     Indication: CROHN^S DISEASE
     Dates: start: 20111216
  2. ORTHO TRI-CYCLEN LO [Concomitant]
     Indication: CONTRACEPTION
     Dosage: DAILY
     Route: 048
  3. B12 [Concomitant]
     Indication: PRODUCT USED FOR UNKNOWN INDICATION
  4. VITAMIN D [Concomitant]
     Indication: VITAMIN SUPPLEMENTATION
     Dosage: OTC
  5. IRON [Concomitant]
     Indication: MINERAL SUPPLEMENTATION
     Dosage: OTC
  6. PREDNISONE [Concomitant]
     Indication: CROHN^S DISEASE
     Route: 048

REACTIONS (5)
  - Injection site urticaria [Recovering/Resolving]
  - Injection site discolouration [Recovering/Resolving]
  - Injection site swelling [Recovering/Resolving]
  - Injection site erythema [Recovering/Resolving]
  - Injection site reaction [Recovering/Resolving]
